FAERS Safety Report 23021819 (Version 4)
Quarter: 2024Q1

REPORT INFORMATION
  Report Type: Spontaneous
  Country: US (occurrence: US)
  Receive Date: 20231003
  Receipt Date: 20240131
  Transmission Date: 20240409
  Serious: Yes (Other)
  Sender: FDA-Public Use
  Company Number: US-PFIZER INC-PV202300133923

PATIENT
  Age: 66 Year
  Sex: Female

DRUGS (5)
  1. BOSULIF [Suspect]
     Active Substance: BOSUTINIB MONOHYDRATE
     Dosage: TAKE 1 TABLET (100 MG TOTAL) BY MOUTH ONCE DAILY X 7 DAYS
     Route: 048
  2. BOSULIF [Suspect]
     Active Substance: BOSUTINIB MONOHYDRATE
     Dosage: 200 MG X 7 DAYS
     Route: 048
  3. BOSULIF [Suspect]
     Active Substance: BOSUTINIB MONOHYDRATE
     Dosage: TAKE 3 TABLETS (300 MG TOTAL) BY MOUTH ONCE DAILY
     Route: 048
  4. BOSULIF [Suspect]
     Active Substance: BOSUTINIB MONOHYDRATE
     Dosage: TAKE 1 TABLET (400 MG TOTAL) BY MOUTH ONCE DAILY
     Route: 048
  5. NEXIUM I.V. [Concomitant]
     Active Substance: ESOMEPRAZOLE SODIUM

REACTIONS (1)
  - Liver function test abnormal [Unknown]
